FAERS Safety Report 5745159-9 (Version None)
Quarter: 2008Q2

REPORT INFORMATION
  Report Type: 
  Country: None (occurrence: None)
  Receive Date: 20080521
  Receipt Date: 20080514
  Transmission Date: 20081010
  Serious: Yes (Other)
  Sender: FDA-Public Use
  Company Number: PHNU2008DE01805

PATIENT
  Age: 49 Year
  Sex: Female

DRUGS (1)
  1. RASILEZ [Suspect]

REACTIONS (3)
  - CONDITION AGGRAVATED [None]
  - DIALYSIS [None]
  - RENAL IMPAIRMENT [None]
